FAERS Safety Report 6058207-6 (Version None)
Quarter: 2009Q1

REPORT INFORMATION
  Report Type: 
  Country: None (occurrence: None)
  Receive Date: 20090130
  Receipt Date: 20090121
  Transmission Date: 20090719
  Serious: Yes (Death)
  Sender: FDA-Public Use
  Company Number: US-JNJFOC-20090104770

PATIENT
  Sex: Male
  Weight: 60.78 kg

DRUGS (3)
  1. FENTANYL CITRATE [Suspect]
     Indication: DRUG USE FOR UNKNOWN INDICATION
     Route: 062
  2. OXYCODONE HCL [Concomitant]
  3. MORPHINE [Concomitant]

REACTIONS (5)
  - ARTERIOSCLEROSIS [None]
  - LUNG ADENOCARCINOMA METASTATIC [None]
  - MULTIPLE INJURIES [None]
  - NARCOTIC INTOXICATION [None]
  - ROAD TRAFFIC ACCIDENT [None]
